FAERS Safety Report 20374236 (Version 1)
Quarter: 2022Q1

REPORT INFORMATION
  Report Type: Spontaneous
  Country: US (occurrence: US)
  Receive Date: 20220125
  Receipt Date: 20220125
  Transmission Date: 20220423
  Serious: Yes (Death, Other)
  Sender: FDA-Public Use
  Company Number: US-AMGEN-USASP2022009636

PATIENT

DRUGS (1)
  1. SENSIPAR [Suspect]
     Active Substance: CINACALCET HYDROCHLORIDE
     Indication: Hyperparathyroidism secondary
     Dosage: UNK
     Route: 065

REACTIONS (17)
  - Coronary artery disease [Fatal]
  - Cerebrovascular disorder [Fatal]
  - Sepsis [Fatal]
  - Haemorrhage [Fatal]
  - Neoplasm malignant [Fatal]
  - Death [Fatal]
  - Azotaemia [Fatal]
  - Cardiac arrest [Fatal]
  - Cardiac failure congestive [Unknown]
  - Pericarditis [Unknown]
  - Arrhythmia [Unknown]
  - Calciphylaxis [Unknown]
  - Pathological fracture [Unknown]
  - Osteoporosis [Unknown]
  - Peripheral vascular disorder [Unknown]
  - Peripheral arterial occlusive disease [Unknown]
  - Arteriosclerosis [Unknown]
